FAERS Safety Report 11619675 (Version 2)
Quarter: 2015Q4

REPORT INFORMATION
  Report Type: Report from Study
  Country: US (occurrence: US)
  Receive Date: 20151012
  Receipt Date: 20151030
  Transmission Date: 20160304
  Serious: Yes (Other)
  Sender: FDA-Public Use
  Company Number: US-JNJFOC-20151001111

PATIENT
  Age: 43 Year
  Sex: Female
  Weight: 74.84 kg

DRUGS (3)
  1. INVOKANA [Suspect]
     Active Substance: CANAGLIFLOZIN
     Indication: GLUCOSE TOLERANCE IMPAIRED
     Route: 048
     Dates: start: 201404, end: 20151001
  2. MULTIVITAMINS [Concomitant]
     Active Substance: VITAMINS
     Route: 065
  3. INVOKANA [Suspect]
     Active Substance: CANAGLIFLOZIN
     Indication: GLUCOSE TOLERANCE IMPAIRED
     Route: 048
     Dates: start: 201404

REACTIONS (24)
  - Spinal osteoarthritis [Not Recovered/Not Resolved]
  - Weight increased [Not Recovered/Not Resolved]
  - Pelvic pain [Not Recovered/Not Resolved]
  - Hypoaesthesia [Recovering/Resolving]
  - Activities of daily living impaired [Not Recovered/Not Resolved]
  - Off label use [Unknown]
  - Pain in extremity [Not Recovered/Not Resolved]
  - Tachycardia [Recovering/Resolving]
  - Back pain [Not Recovered/Not Resolved]
  - Ageusia [Not Recovered/Not Resolved]
  - Hypokinesia [Not Recovered/Not Resolved]
  - Muscle spasms [Not Recovered/Not Resolved]
  - Feeling abnormal [Not Recovered/Not Resolved]
  - Hypoaesthesia [Not Recovered/Not Resolved]
  - Abnormal loss of weight [Recovered/Resolved]
  - Hypoaesthesia oral [Recovering/Resolving]
  - Ear discomfort [Not Recovered/Not Resolved]
  - Urine output increased [Recovering/Resolving]
  - Product use issue [Unknown]
  - Pain [Not Recovered/Not Resolved]
  - Discomfort [Not Recovered/Not Resolved]
  - Gait disturbance [Not Recovered/Not Resolved]
  - Wrong technique in product usage process [Not Recovered/Not Resolved]
  - Abdominal pain upper [Recovered/Resolved]

NARRATIVE: CASE EVENT DATE: 2015
